FAERS Safety Report 24451475 (Version 1)
Quarter: 2024Q4

REPORT INFORMATION
  Report Type: Spontaneous
  Country: AL (occurrence: AL)
  Receive Date: 20241017
  Receipt Date: 20241017
  Transmission Date: 20250115
  Serious: Yes (Other)
  Sender: AMGEN
  Company Number: AL-AMGEN-ALBSP2024201904

PATIENT
  Age: 74 Year
  Sex: Male

DRUGS (4)
  1. CINACALCET HYDROCHLORIDE [Suspect]
     Active Substance: CINACALCET HYDROCHLORIDE
     Indication: Hyperparathyroidism secondary
     Dosage: UNK
     Route: 065
  2. FEBUXOSTAT [Concomitant]
     Active Substance: FEBUXOSTAT
  3. CARVEDILOL [Concomitant]
     Active Substance: CARVEDILOL
  4. OMEPRAZOLE [Concomitant]
     Active Substance: OMEPRAZOLE

REACTIONS (2)
  - Parathyroid tumour benign [Unknown]
  - Hyperparathyroidism primary [Unknown]
